FAERS Safety Report 4907287-7 (Version None)
Quarter: 2006Q1

REPORT INFORMATION
  Report Type: 
  Country: None (occurrence: None)
  Receive Date: 20060207
  Receipt Date: 20060125
  Transmission Date: 20060701
  Serious: Yes (Other)
  Sender: FDA-Public Use
  Company Number: 2006012634

PATIENT
  Sex: Male
  Weight: 85.2762 kg

DRUGS (4)
  1. ATORVASTATIN CALCIUM [Suspect]
     Indication: BLOOD CHOLESTEROL INCREASED
     Dosage: 10 MG (10 MG, 1 IN 1 D); 11 YEARS AGO
  2. THYROID TAB [Concomitant]
  3. ASPIRIN [Concomitant]
  4. FLOMAX [Concomitant]

REACTIONS (3)
  - MUSCLE SPASMS [None]
  - PERIPHERAL ARTERIAL OCCLUSIVE DISEASE [None]
  - RENAL ARTERY OCCLUSION [None]
